FAERS Safety Report 6782136-3 (Version None)
Quarter: 2010Q2

REPORT INFORMATION
  Report Type: 
  Country: None (occurrence: None)
  Receive Date: 20100621
  Receipt Date: 20100615
  Transmission Date: 20101027
  Serious: Yes (Hospitalization)
  Sender: FDA-Public Use
  Company Number: FR-MERCK-1006FRA00056

PATIENT
  Age: 82 Year
  Sex: Female

DRUGS (10)
  1. HYZAAR [Suspect]
     Indication: HYPERTENSION
     Route: 048
     Dates: end: 20090508
  2. INIPOMP [Suspect]
     Indication: HIATUS HERNIA
     Route: 048
  3. LASIX [Suspect]
     Indication: HYPERTENSION
     Route: 048
     Dates: end: 20090508
  4. STABLON [Concomitant]
     Indication: MAJOR DEPRESSION
     Route: 048
  5. ZYPREXA [Concomitant]
     Route: 048
  6. BONIVA [Concomitant]
     Indication: OSTEOPOROSIS
     Route: 048
  7. NORMACOL (STERCULIA) [Concomitant]
     Route: 048
  8. CARBOSYMAG [Concomitant]
     Route: 048
  9. SPASFON [Concomitant]
     Route: 065
  10. DAFALGAN [Concomitant]
     Route: 065

REACTIONS (3)
  - DRUG INTERACTION [None]
  - HYPOKALAEMIA [None]
  - HYPONATRAEMIA [None]
